FAERS Safety Report 15907935 (Version 1)
Quarter: 2019Q1

REPORT INFORMATION
  Report Type: Report from Study
  Country: DE (occurrence: DE)
  Receive Date: 20190204
  Receipt Date: 20190204
  Transmission Date: 20190417
  Serious: Yes (Other)
  Sender: FDA-Public Use
  Company Number: DE-AMREGENT-20190149

PATIENT
  Age: 51 Year
  Sex: Female

DRUGS (5)
  1. VENOFER [Suspect]
     Active Substance: IRON SUCROSE
     Dosage: UNKNOWN
     Route: 065
  2. HUMIRA [Suspect]
     Active Substance: ADALIMUMAB
     Dosage: 40 MG/0.4 ML (40 MG,1 IN 14 D)
     Route: 058
     Dates: start: 201608
  3. PENICILLIN NOS [Suspect]
     Active Substance: PENICILLIN
     Dosage: UNKNOWN
     Route: 065
     Dates: start: 20181101, end: 20181112
  4. PANTOZOL [Concomitant]
     Active Substance: PANTOPRAZOLE SODIUM
     Dosage: AS REQUIRED
     Route: 048
     Dates: start: 20170914
  5. COLESTYRAMINE [Concomitant]
     Active Substance: CHOLESTYRAMINE
     Dosage: AS REQUIRED
     Route: 048
     Dates: start: 20150213

REACTIONS (13)
  - Feeling hot [Unknown]
  - Systemic lupus erythematosus [Unknown]
  - Drug intolerance [Unknown]
  - Swelling [Unknown]
  - Rash macular [Unknown]
  - Erythema [Unknown]
  - Rash [Unknown]
  - Bronchitis [Unknown]
  - Blood iron decreased [Unknown]
  - Neck pain [Unknown]
  - Gait disturbance [Unknown]
  - Pruritus [Unknown]
  - Pain [Unknown]

NARRATIVE: CASE EVENT DATE: 201711
